FAERS Safety Report 21870035 (Version 5)
Quarter: 2024Q3

REPORT INFORMATION
  Report Type: Spontaneous
  Country: CZ (occurrence: CZ)
  Receive Date: 20230117
  Receipt Date: 20240702
  Transmission Date: 20241016
  Serious: Yes (Other)
  Sender: CELLTRION
  Company Number: CZ-CELLTRION INC.-2023CZ000384

PATIENT

DRUGS (14)
  1. RITUXIMAB [Suspect]
     Active Substance: RITUXIMAB
     Indication: Follicular lymphoma
     Dosage: PART OF R-COPP REGIMEN
  2. HUMAN IMMUNOGLOBULIN G [Suspect]
     Active Substance: HUMAN IMMUNOGLOBULIN G
     Indication: CD8 lymphocytes increased
     Dosage: 0.3 G/KG, Q3WEEKS
     Route: 042
  3. HUMAN IMMUNOGLOBULIN G [Suspect]
     Active Substance: HUMAN IMMUNOGLOBULIN G
     Indication: Hypogammaglobulinaemia
  4. HUMAN IMMUNOGLOBULIN G [Suspect]
     Active Substance: HUMAN IMMUNOGLOBULIN G
     Indication: Lymphadenopathy
  5. PREDNISONE [Suspect]
     Active Substance: PREDNISONE
     Indication: Follicular lymphoma
     Dosage: 1 MILLIGRAM/KILOGRAM, QD
  6. PREDNISONE [Suspect]
     Active Substance: PREDNISONE
     Dosage: 5 MG, QD
  7. PREDNISONE [Suspect]
     Active Substance: PREDNISONE
     Dosage: PART OF R-COPP REGIMEN
  8. PREDNISONE [Suspect]
     Active Substance: PREDNISONE
     Dosage: PART OF CHOP REGIMEN
  9. ONCOVIN [Suspect]
     Active Substance: VINCRISTINE SULFATE
     Indication: Follicular lymphoma
     Dosage: PART OF CHOP REGIMEN
  10. VINCRISTINE [Suspect]
     Active Substance: VINCRISTINE
     Indication: Follicular lymphoma
     Dosage: PART OF R-COPP REGIMEN
  11. PROCARBAZINE [Suspect]
     Active Substance: PROCARBAZINE
     Indication: Follicular lymphoma
     Dosage: PART OF R-COPP REGIMEN
  12. DOXORUBICIN [Suspect]
     Active Substance: DOXORUBICIN
     Indication: Follicular lymphoma
     Dosage: PART OF CHOP REGIMEN
  13. CYCLOPHOSPHAMIDE [Suspect]
     Active Substance: CYCLOPHOSPHAMIDE
     Indication: Follicular lymphoma
     Dosage: PART OF CHOP REGIMEN
  14. CYCLOPHOSPHAMIDE [Suspect]
     Active Substance: CYCLOPHOSPHAMIDE
     Dosage: PART OF R-COPP REGIMEN

REACTIONS (7)
  - CD8 lymphocytes increased [Recovered/Resolved]
  - Lymphoproliferative disorder [Recovering/Resolving]
  - Hypogammaglobulinaemia [Recovering/Resolving]
  - Hypogammaglobulinaemia [Unknown]
  - General physical health deterioration [Recovering/Resolving]
  - Lymphopenia [Unknown]
  - Off label use [Unknown]
